FAERS Safety Report 12058993 (Version 2)
Quarter: 2017Q1

REPORT INFORMATION
  Report Type: Spontaneous
  Country: US (occurrence: US)
  Receive Date: 20160209
  Receipt Date: 20170119
  Transmission Date: 20170428
  Serious: Yes (Other)
  Sender: FDA-Public Use
  Company Number: US-BIOGEN-2016BI00183596

PATIENT
  Sex: Female

DRUGS (2)
  1. AVONEX [Suspect]
     Active Substance: INTERFERON BETA-1A
     Route: 065
     Dates: start: 20050829, end: 20161101
  2. AVONEX [Suspect]
     Active Substance: INTERFERON BETA-1A
     Indication: MULTIPLE SCLEROSIS
     Route: 065
     Dates: start: 20040518, end: 20050103

REACTIONS (7)
  - Arthralgia [Not Recovered/Not Resolved]
  - Blindness transient [Recovered/Resolved]
  - Gastric disorder [Not Recovered/Not Resolved]
  - Pyrexia [Recovered/Resolved]
  - Alopecia [Unknown]
  - Fatigue [Recovered/Resolved]
  - Influenza like illness [Not Recovered/Not Resolved]

NARRATIVE: CASE EVENT DATE: 2005
